FAERS Safety Report 7369898-1 (Version None)
Quarter: 2011Q1

REPORT INFORMATION
  Report Type: 
  Country: None (occurrence: None)
  Receive Date: 20110323
  Receipt Date: 20101007
  Transmission Date: 20110831
  Serious: Yes (Hospitalization, Other)
  Sender: FDA-Public Use
  Company Number: US-BAYER-201017830NA

PATIENT
  Sex: Female
  Weight: 54.422 kg

DRUGS (7)
  1. YASMIN [Suspect]
     Indication: CONTRACEPTION
     Dosage: UNK UNK, UNK
     Route: 048
     Dates: start: 20060101, end: 20070501
  2. YAZ [Suspect]
     Indication: MENSTRUATION IRREGULAR
  3. ZYRTEC [Concomitant]
     Dosage: UNK
     Dates: end: 20080418
  4. YAZ [Suspect]
     Indication: CONTRACEPTION
     Dosage: UNK UNK, UNK
     Route: 048
     Dates: start: 20070501, end: 20080401
  5. UNCODEABLE ^UNCLASSIFIABLE^ [Concomitant]
     Indication: ASTHMA
     Dosage: UNK
     Dates: end: 20080418
  6. YASMIN [Suspect]
     Indication: MENSTRUATION IRREGULAR
  7. EXCEDRIN (MIGRAINE) [Concomitant]
     Indication: MIGRAINE
     Dosage: UNK
     Dates: end: 20080418

REACTIONS (6)
  - PAIN [None]
  - VERTIGO [None]
  - CEREBROVASCULAR ACCIDENT [None]
  - HEADACHE [None]
  - TRANSIENT ISCHAEMIC ATTACK [None]
  - PARALYSIS [None]
